FAERS Safety Report 6093958-9 (Version None)
Quarter: 2009Q1

REPORT INFORMATION
  Report Type: 
  Country: None (occurrence: None)
  Receive Date: 20090226
  Receipt Date: 20090220
  Transmission Date: 20090719
  Serious: Yes (Hospitalization)
  Sender: FDA-Public Use
  Company Number: A0770319A

PATIENT
  Age: 66 Year
  Sex: Female
  Weight: 61.4 kg

DRUGS (2)
  1. AVANDIA [Suspect]
     Indication: DIABETES MELLITUS
     Dosage: 4MG PER DAY
     Route: 048
     Dates: start: 20020101, end: 20050101
  2. INSULIN [Concomitant]

REACTIONS (5)
  - ARRHYTHMIA [None]
  - ARTERIAL OCCLUSIVE DISEASE [None]
  - CARDIOMEGALY [None]
  - MYOCARDIAL INFARCTION [None]
  - RENAL DISORDER [None]
